FAERS Safety Report 4601189-1 (Version None)
Quarter: 2005Q1

REPORT INFORMATION
  Report Type: 
  Country: None (occurrence: None)
  Receive Date: 20050308
  Receipt Date: 20050209
  Transmission Date: 20050727
  Serious: Yes (Death)
  Sender: FDA-Public Use
  Company Number: PHBS2005DK02088

PATIENT
  Age: 54 Year
  Sex: Female
  Weight: 70 kg

DRUGS (4)
  1. VOLTAREN [Suspect]
     Indication: ARTHRALGIA
     Dosage: 75 MG, ONCE/SINGLE
     Route: 030
     Dates: start: 20041125, end: 20041125
  2. TRAMADOL HCL [Concomitant]
     Indication: ARTHRALGIA
     Dosage: UNK, PRN
     Dates: start: 20041125
  3. PRIMCILLIN [Concomitant]
     Indication: BURSITIS
     Dosage: 800 MG, TID
     Route: 065
     Dates: start: 20041127
  4. VOLTAREN [Suspect]
     Dosage: 50 MG, TID
     Route: 048
     Dates: start: 20041125

REACTIONS (5)
  - CONVULSION [None]
  - DEATH [None]
  - FAECES DISCOLOURED [None]
  - LIVER DISORDER [None]
  - SUDDEN DEATH [None]
